FAERS Safety Report 9434719 (Version 2)
Quarter: 2013Q3

REPORT INFORMATION
  Report Type: Spontaneous
  Country: US (occurrence: US)
  Receive Date: 20130801
  Receipt Date: 20130905
  Transmission Date: 20140515
  Serious: Yes (Death, Other)
  Sender: FDA-Public Use
  Company Number: US-ASTELLAS-2013US008063

PATIENT
  Age: 24 Year
  Sex: Male

DRUGS (1)
  1. PROGRAF [Suspect]
     Indication: BONE MARROW TRANSPLANT
     Dosage: 3 MG, (2 MG AM, 1 MG PM)
     Route: 048
     Dates: start: 20110405, end: 20130628

REACTIONS (4)
  - Off label use [Unknown]
  - Respiratory disorder [Fatal]
  - Weight decreased [Not Recovered/Not Resolved]
  - Asthenia [Not Recovered/Not Resolved]
